FAERS Safety Report 14694869 (Version 3)
Quarter: 2018Q2

REPORT INFORMATION
  Report Type: Report from Study
  Country: JP (occurrence: JP)
  Receive Date: 20180329
  Receipt Date: 20180518
  Transmission Date: 20180711
  Serious: Yes (Hospitalization)
  Sender: FDA-Public Use
  Company Number: JP-BIOGEN-2018BI00543912

PATIENT
  Age: 0 Year
  Sex: Male
  Weight: 4.3 kg

DRUGS (11)
  1. SPINRAZA [Suspect]
     Active Substance: NUSINERSEN
     Indication: SPINAL MUSCULAR ATROPHY
     Route: 037
     Dates: start: 20171011, end: 20171011
  2. SPINRAZA [Suspect]
     Active Substance: NUSINERSEN
     Route: 037
     Dates: start: 20171025, end: 20171025
  3. SPINRAZA [Suspect]
     Active Substance: NUSINERSEN
     Route: 037
     Dates: start: 20171213, end: 20171213
  4. EMLA [Concomitant]
     Active Substance: LIDOCAINE\PRILOCAINE
     Route: 062
     Dates: start: 20171025, end: 20171025
  5. HEPARINOID [Concomitant]
     Active Substance: CHONDROITIN SULFATE (BOVINE)
     Indication: ECZEMA INFANTILE
     Route: 062
  6. SYNAGIS [Concomitant]
     Active Substance: PALIVIZUMAB
     Indication: PROPHYLAXIS
     Dosage: 80-100MG/DAY
     Route: 030
     Dates: start: 20171121
  7. EMLA [Concomitant]
     Active Substance: LIDOCAINE\PRILOCAINE
     Indication: ANAESTHESIA PROCEDURE
     Route: 062
     Dates: start: 20171011, end: 20171011
  8. LOCOID [Concomitant]
     Active Substance: HYDROCORTISONE BUTYRATE
     Indication: ECZEMA INFANTILE
     Route: 062
     Dates: start: 20171225
  9. SPINRAZA [Suspect]
     Active Substance: NUSINERSEN
     Route: 037
     Dates: start: 20171108, end: 20171108
  10. EMLA [Concomitant]
     Active Substance: LIDOCAINE\PRILOCAINE
     Route: 062
     Dates: start: 20171108, end: 20171108
  11. EMLA [Concomitant]
     Active Substance: LIDOCAINE\PRILOCAINE
     Route: 062
     Dates: start: 20171213, end: 20171213

REACTIONS (1)
  - Upper respiratory tract inflammation [Recovered/Resolved]

NARRATIVE: CASE EVENT DATE: 20171223
